FAERS Safety Report 6332837-6 (Version None)
Quarter: 2009Q3

REPORT INFORMATION
  Report Type: 
  Country: None (occurrence: None)
  Receive Date: 20090828
  Receipt Date: 20090821
  Transmission Date: 20100115
  Serious: Yes (Hospitalization)
  Sender: FDA-Public Use
  Company Number: US-ABBOTT-07P-163-0414925-00

PATIENT
  Sex: Female
  Weight: 77.18 kg

DRUGS (3)
  1. HUMIRA [Suspect]
     Indication: RHEUMATOID ARTHRITIS
     Dosage: SYRINGE
     Route: 058
     Dates: start: 20031201, end: 20070501
  2. HUMIRA [Suspect]
     Dosage: PEN
     Dates: start: 20070501, end: 20070601
  3. HUMIRA [Suspect]
     Dosage: SYRINGE
     Dates: start: 20070601

REACTIONS (6)
  - ARTHRALGIA [None]
  - CARTILAGE INJURY [None]
  - FALL [None]
  - INCORRECT DOSE ADMINISTERED [None]
  - INJECTION SITE IRRITATION [None]
  - UPPER LIMB FRACTURE [None]
